FAERS Safety Report 9185578 (Version 1)
Quarter: 2012Q4

REPORT INFORMATION
  Report Type: 
  Country: US (occurrence: US)
  Receive Date: 20121031
  Receipt Date: 20121031
  Transmission Date: 20130627
  Serious: Yes (Hospitalization)
  Sender: FDA-Public Use
  Company Number: US-BAYER-2012-113504

PATIENT
  Age: 22 Year
  Sex: Female

DRUGS (11)
  1. YAZ [Suspect]
  2. YASMIN [Suspect]
  3. OCELLA [Suspect]
  4. GIANVI [Suspect]
  5. GEODON [Concomitant]
     Route: 048
  6. VICODIN [Concomitant]
     Indication: PAIN
     Route: 048
  7. REMERON [Concomitant]
     Route: 048
  8. XANAX [Concomitant]
     Route: 048
  9. CITALOPRAM [Concomitant]
     Route: 048
  10. BENADRYL [Concomitant]
  11. HYDROCODONE W/ACETAMINOPHEN [Concomitant]

REACTIONS (2)
  - Deep vein thrombosis [Recovered/Resolved]
  - Pulmonary embolism [Recovered/Resolved]
